FAERS Safety Report 10763670 (Version 2)
Quarter: 2015Q1

REPORT INFORMATION
  Report Type: Spontaneous
  Country: US (occurrence: US)
  Receive Date: 20150204
  Receipt Date: 20150210
  Transmission Date: 20150721
  Serious: Yes (Hospitalization, Other)
  Sender: FDA-Public Use
  Company Number: US-PFIZER INC-2015041417

PATIENT
  Age: 54 Year
  Sex: Female
  Weight: 73 kg

DRUGS (9)
  1. LIPITOR [Suspect]
     Active Substance: ATORVASTATIN CALCIUM
     Indication: BLOOD CHOLESTEROL
     Dosage: 20 MG, 1X/DAY
     Route: 048
     Dates: start: 20141210, end: 20141227
  2. LAMICTAL [Concomitant]
     Active Substance: LAMOTRIGINE
     Indication: BIPOLAR DISORDER
     Dosage: 200 MG, 1X/DAY
     Route: 048
  3. ZOLOFT [Concomitant]
     Active Substance: SERTRALINE HYDROCHLORIDE
     Indication: BIPOLAR DISORDER
     Dosage: 100 MG, 1X/DAY
     Route: 048
  4. BUSPIRONE [Concomitant]
     Active Substance: BUSPIRONE HYDROCHLORIDE
     Indication: BIPOLAR DISORDER
     Dosage: 5 MG, 2X/DAY
  5. ZOLOFT [Concomitant]
     Active Substance: SERTRALINE HYDROCHLORIDE
     Indication: PANIC ATTACK
  6. LORAZEPAM. [Concomitant]
     Active Substance: LORAZEPAM
     Indication: PANIC ATTACK
     Dosage: 1 MG, UP TO THREE TIMES A DAY AS NEEDED
  7. LORAZEPAM. [Concomitant]
     Active Substance: LORAZEPAM
     Indication: DEPRESSION
  8. BUSPIRONE [Concomitant]
     Active Substance: BUSPIRONE HYDROCHLORIDE
     Indication: PANIC ATTACK
  9. LAMICTAL [Concomitant]
     Active Substance: LAMOTRIGINE
     Indication: PANIC ATTACK

REACTIONS (7)
  - Pneumonia [Unknown]
  - Dizziness [Not Recovered/Not Resolved]
  - Arthropathy [Not Recovered/Not Resolved]
  - Myalgia [Not Recovered/Not Resolved]
  - Muscular weakness [Not Recovered/Not Resolved]
  - Fall [Unknown]
  - Arthralgia [Not Recovered/Not Resolved]

NARRATIVE: CASE EVENT DATE: 201412
